FAERS Safety Report 8006718-6 (Version None)
Quarter: 2011Q4

REPORT INFORMATION
  Report Type: 
  Country: None (occurrence: None)
  Receive Date: 20111227
  Receipt Date: 20111215
  Transmission Date: 20120403
  Serious: Yes (Other)
  Sender: FDA-Public Use
  Company Number: CA-JNJFOC-20111208857

PATIENT
  Sex: Male
  Weight: 74 kg

DRUGS (2)
  1. PREDNISONE TAB [Concomitant]
  2. REMICADE [Suspect]
     Indication: COLITIS ULCERATIVE
     Dates: start: 20110502, end: 20111128

REACTIONS (1)
  - COLECTOMY [None]
